FAERS Safety Report 14593797 (Version 2)
Quarter: 2018Q4

REPORT INFORMATION
  Report Type: Spontaneous
  Country: AU (occurrence: AU)
  Receive Date: 20180302
  Receipt Date: 20181123
  Transmission Date: 20190204
  Serious: Yes (Other)
  Sender: FDA-Public Use
  Company Number: AU-009507513-1802AUS013760

PATIENT
  Age: 5 Year
  Sex: Male

DRUGS (1)
  1. SINGULAIR [Suspect]
     Active Substance: MONTELUKAST SODIUM
     Dosage: UNK
     Route: 048
     Dates: start: 2015

REACTIONS (4)
  - Autism spectrum disorder [Unknown]
  - Depressed mood [Unknown]
  - Sleep terror [Unknown]
  - Aggression [Unknown]

NARRATIVE: CASE EVENT DATE: 2017
